FAERS Safety Report 7421117-3 (Version None)
Quarter: 2011Q2

REPORT INFORMATION
  Report Type: 
  Country: None (occurrence: None)
  Receive Date: 20110418
  Receipt Date: 20110411
  Transmission Date: 20111010
  Serious: Yes (Other)
  Sender: FDA-Public Use
  Company Number: GB-ELI_LILLY_AND_COMPANY-GB201104003575

PATIENT
  Sex: Male
  Weight: 95.238 kg

DRUGS (4)
  1. ASPIRIN [Concomitant]
     Dosage: 75 MG, UNK
  2. CIALIS [Suspect]
     Dosage: 20 MG, UNK
  3. ATENOLOL [Concomitant]
     Dosage: 25 MG, UNK
  4. CANDESARTAN [Concomitant]
     Dosage: 4 MG, UNK

REACTIONS (1)
  - CORONARY ARTERIAL STENT INSERTION [None]
